FAERS Safety Report 25251374 (Version 1)
Quarter: 2025Q2

REPORT INFORMATION
  Report Type: Spontaneous
  Country: US (occurrence: None)
  Receive Date: 20250428
  Receipt Date: 20250428
  Transmission Date: 20250717
  Serious: Yes (Hospitalization)
  Sender: FDA-CTU
  Company Number: None

PATIENT
  Age: 77 Year
  Sex: Female

DRUGS (1)
  1. POMALYST [Suspect]
     Active Substance: POMALIDOMIDE
     Indication: Plasma cell myeloma
     Dosage: 4MG QD ORAL
     Route: 048
     Dates: start: 20231228

REACTIONS (4)
  - Encephalopathy [None]
  - Decreased appetite [None]
  - Atrial fibrillation [None]
  - Infarction [None]

NARRATIVE: CASE EVENT DATE: 20250413
